FAERS Safety Report 5485069-8 (Version None)
Quarter: 2007Q4

REPORT INFORMATION
  Report Type: 
  Country: None (occurrence: None)
  Receive Date: 20071015
  Receipt Date: 20071008
  Transmission Date: 20080405
  Serious: Yes (Life-Threatening, Hospitalization, Other)
  Sender: FDA-Public Use
  Company Number: PHHO2006NL10884

PATIENT
  Age: 64 Year
  Sex: Male
  Weight: 68 kg

DRUGS (6)
  1. EXJADE [Suspect]
     Indication: BLOOD IRON INCREASED
     Dosage: 1375 MG, QD
     Route: 048
     Dates: start: 20060627, end: 20060704
  2. CEFTAZIDIME [Concomitant]
  3. CORTICOSTEROID NOS [Concomitant]
  4. SPIRIVA [Concomitant]
  5. PAROXETINE [Concomitant]
  6. OLANZAPINE [Concomitant]

REACTIONS (20)
  - ACUTE RESPIRATORY FAILURE [None]
  - DEEP VEIN THROMBOSIS [None]
  - DELIRIUM [None]
  - DISSEMINATED INTRAVASCULAR COAGULATION [None]
  - DYSPHAGIA [None]
  - ERYTHEMA [None]
  - HYPOTENSION [None]
  - IDIOSYNCRATIC DRUG REACTION [None]
  - LACTIC ACIDOSIS [None]
  - LUNG DISORDER [None]
  - MALAISE [None]
  - PETECHIAE [None]
  - PNEUMOTHORAX [None]
  - PULMONARY EMBOLISM [None]
  - PULMONARY OEDEMA [None]
  - PURPURA [None]
  - PYREXIA [None]
  - RASH GENERALISED [None]
  - SYSTEMIC INFLAMMATORY RESPONSE SYNDROME [None]
  - TOXIC SKIN ERUPTION [None]
